FAERS Safety Report 7414606-9 (Version None)
Quarter: 2011Q2

REPORT INFORMATION
  Report Type: 
  Country: None (occurrence: None)
  Receive Date: 20110414
  Receipt Date: 20110408
  Transmission Date: 20111010
  Serious: Yes (Death, Hospitalization)
  Sender: FDA-Public Use
  Company Number: US-US-EMD SERONO, INC.-7052804

PATIENT
  Sex: Male

DRUGS (3)
  1. REBIF [Suspect]
     Indication: MULTIPLE SCLEROSIS
     Route: 058
     Dates: start: 20030101, end: 20100501
  2. FELBATOL [Concomitant]
     Indication: CONVULSION
     Dates: end: 20100501
  3. UNSPECIFIED MEDICATIONS [Concomitant]
     Dates: end: 20100501

REACTIONS (2)
  - PNEUMONIA ASPIRATION [None]
  - PLEURAL INFECTION [None]
